FAERS Safety Report 7968392-4 (Version None)
Quarter: 2011Q4

REPORT INFORMATION
  Report Type: 
  Country: None (occurrence: None)
  Receive Date: 20111209
  Receipt Date: 20111202
  Transmission Date: 20120403
  Serious: Yes (Hospitalization, Other)
  Sender: FDA-Public Use
  Company Number: US-ABBOTT-11P-163-0871803-00

PATIENT
  Sex: Female
  Weight: 49.94 kg

DRUGS (12)
  1. PLAVIX [Concomitant]
     Indication: CEREBROVASCULAR ACCIDENT PROPHYLAXIS
  2. LOVAZA [Concomitant]
     Indication: PRODUCT USED FOR UNKNOWN INDICATION
  3. ALLOPURINOL [Concomitant]
     Indication: GOUT
  4. AMLODIPINE [Concomitant]
     Indication: PRODUCT USED FOR UNKNOWN INDICATION
  5. LOPRESSOR [Concomitant]
     Indication: HYPERTENSION
  6. ACIPHEX [Concomitant]
     Indication: PRODUCT USED FOR UNKNOWN INDICATION
  7. ASPIRIN [Concomitant]
     Indication: CARDIAC DISORDER
  8. NORVASC [Concomitant]
     Indication: HYPERTENSION
  9. JENUVIA [Concomitant]
     Indication: DIABETES MELLITUS
  10. HUMIRA [Suspect]
     Indication: RHEUMATOID ARTHRITIS
     Dates: start: 20070101, end: 20111003
  11. CRESTOR [Concomitant]
     Indication: BLOOD CHOLESTEROL INCREASED
  12. METOPROLOL TARTRATE [Concomitant]
     Indication: PRODUCT USED FOR UNKNOWN INDICATION

REACTIONS (7)
  - UNRESPONSIVE TO STIMULI [None]
  - DEHYDRATION [None]
  - WEIGHT DECREASED [None]
  - LYMPHADENOPATHY [None]
  - HODGKIN'S DISEASE [None]
  - NAUSEA [None]
  - ELECTROLYTE IMBALANCE [None]
